FAERS Safety Report 5063104-9 (Version None)
Quarter: 2006Q3

REPORT INFORMATION
  Report Type: 
  Country: None (occurrence: None)
  Receive Date: 20060725
  Receipt Date: 20060725
  Transmission Date: 20061208
  Serious: Yes (Other)
  Sender: FDA-Public Use
  Company Number: None

PATIENT
  Age: 25 Year
  Sex: Female
  Weight: 42.1845 kg

DRUGS (1)
  1. LYRICA [Suspect]
     Indication: BACK PAIN
     Dosage: 50 MG  3 TIMES PER DAY PO
     Route: 048
     Dates: start: 20060711, end: 20060719

REACTIONS (3)
  - ALTERED VISUAL DEPTH PERCEPTION [None]
  - DIZZINESS [None]
  - GAIT DISTURBANCE [None]
